FAERS Safety Report 6822227-1 (Version None)
Quarter: 2010Q3

REPORT INFORMATION
  Report Type: 
  Country: None (occurrence: None)
  Receive Date: 20100708
  Receipt Date: 20100628
  Transmission Date: 20110219
  Serious: Yes (Hospitalization)
  Sender: FDA-Public Use
  Company Number: US-NOVOPROD-310820

PATIENT
  Sex: Female

DRUGS (7)
  1. NOVOLIN R [Suspect]
     Indication: DIABETES MELLITUS
     Dosage: PER PATIENT''S BLOOD SUGARS
     Route: 058
     Dates: start: 20050101
  2. NOVOLIN R [Suspect]
     Dosage: 24 IU, SINGLE
     Route: 058
     Dates: start: 20100614, end: 20100614
  3. NORVASC [Concomitant]
     Indication: CHEST PAIN
     Dosage: UNK
     Route: 048
  4. MORPHINE SULFATE [Concomitant]
     Indication: CHEST PAIN
     Dosage: UNK
     Route: 048
  5. TOPROL-XL                          /00376902/ [Concomitant]
     Indication: CHEST PAIN
     Dosage: UNK
     Route: 048
  6. ZANAFLEX [Concomitant]
     Indication: CHEST PAIN
     Dosage: UNK
     Route: 048
  7. NITROGLYCERIN [Concomitant]
     Indication: CHEST PAIN
     Dosage: UNK
     Route: 048

REACTIONS (5)
  - BLOOD GLUCOSE INCREASED [None]
  - CHEST PAIN [None]
  - INCORRECT PRODUCT STORAGE [None]
  - URINARY TRACT INFECTION [None]
  - URINE KETONE BODY PRESENT [None]
